FAERS Safety Report 8367185-6 (Version None)
Quarter: 2012Q2

REPORT INFORMATION
  Report Type: 
  Country: None (occurrence: None)
  Receive Date: 20120517
  Receipt Date: 20120510
  Transmission Date: 20120825
  Serious: Yes (Hospitalization)
  Sender: FDA-Public Use
  Company Number: SE-ASTRAZENECA-2012SE29983

PATIENT
  Age: 80 Year
  Sex: Female

DRUGS (5)
  1. METOPROLOL TARTRATE [Concomitant]
  2. VIMOVO [Suspect]
     Dosage: 500 MG/20 MG, 1 DF
     Route: 048
     Dates: start: 20120131, end: 20120217
  3. FELODIPINE [Concomitant]
     Route: 048
  4. ZOLPIDEM TARTRATE [Concomitant]
  5. CIRCADIN [Concomitant]

REACTIONS (2)
  - ATRIAL FIBRILLATION [None]
  - HEPATIC FUNCTION ABNORMAL [None]
